FAERS Safety Report 15429564 (Version 1)
Quarter: 2018Q3

REPORT INFORMATION
  Report Type: Spontaneous
  Country: US (occurrence: US)
  Receive Date: 20180926
  Receipt Date: 20180926
  Transmission Date: 20181010
  Serious: Yes (Hospitalization)
  Sender: FDA-Public Use
  Company Number: US-ELI_LILLY_AND_COMPANY-US201809009676

PATIENT
  Sex: Male

DRUGS (1)
  1. TALTZ [Suspect]
     Active Substance: IXEKIZUMAB
     Indication: MULTIPLE SCLEROSIS
     Dosage: 80 MG, EVERY FOUR WEEKS
     Route: 058
     Dates: start: 20180410

REACTIONS (2)
  - Cardiac failure congestive [Unknown]
  - Off label use [Unknown]
